FAERS Safety Report 7292824-0 (Version None)
Quarter: 2011Q1

REPORT INFORMATION
  Report Type: 
  Country: None (occurrence: None)
  Receive Date: 20110203
  Receipt Date: 20110121
  Transmission Date: 20110831
  Serious: Yes (Hospitalization)
  Sender: FDA-Public Use
  Company Number: 007344

PATIENT
  Sex: Female

DRUGS (2)
  1. CIMZIA [Suspect]
     Indication: RHEUMATOID ARTHRITIS
     Dosage: 400 MG  1X/4 WEEKS, SUBCUTANEOUS
     Route: 058
     Dates: start: 20091017, end: 20100401
  2. CIMZIA [Suspect]
     Indication: CROHN'S DISEASE
     Dosage: 400 MG 1X/4 WEEKS; SUBCUTANEOUS
     Route: 058
     Dates: start: 20091017, end: 20100401

REACTIONS (3)
  - CONDITION AGGRAVATED [None]
  - GOUT [None]
  - POST PROCEDURAL INFECTION [None]
